FAERS Safety Report 8888123 (Version 2)
Quarter: 2012Q4

REPORT INFORMATION
  Report Type: 
  Country: JP (occurrence: JP)
  Receive Date: 20121106
  Receipt Date: 20121121
  Transmission Date: 20130627
  Serious: Yes (Other)
  Sender: FDA-Public Use
  Company Number: JP-AMGEN-JPNSP2012070345

PATIENT
  Age: 55 Year
  Sex: Male

DRUGS (4)
  1. ARANESP [Suspect]
     Indication: NEPHROGENIC ANAEMIA
     Dosage: UNK
     Route: 058
     Dates: start: 2011
  2. NEORAL [Concomitant]
     Dosage: UNK
     Route: 048
  3. NEORAL [Concomitant]
     Dosage: Uncertainty
     Route: 048
  4. CELLCEPT                           /01275102/ [Concomitant]
     Dosage: UNK
     Route: 048

REACTIONS (1)
  - Aplasia pure red cell [Unknown]
